FAERS Safety Report 21088011 (Version 1)
Quarter: 2022Q3

REPORT INFORMATION
  Report Type: Spontaneous
  Country: CN (occurrence: CN)
  Receive Date: 20220715
  Receipt Date: 20220715
  Transmission Date: 20221027
  Serious: Yes (Other)
  Sender: FDA-Public Use
  Company Number: None

PATIENT
  Age: 41 Year
  Sex: Female
  Weight: 54 kg

DRUGS (9)
  1. CYCLOPHOSPHAMIDE [Suspect]
     Active Substance: CYCLOPHOSPHAMIDE
     Indication: Breast cancer female
     Dosage: UNK QD1ST CHEMOTHERAPY
     Route: 042
  2. CYCLOPHOSPHAMIDE [Suspect]
     Active Substance: CYCLOPHOSPHAMIDE
     Dosage: 920 MG, QD 2ND CHEMOTHERAPY CYCLOPHOSPHAMIDE FOR INJECTION (ENDOXAN CTX) 920 MG + NS 50ML
     Route: 042
     Dates: start: 20220420, end: 20220420
  3. SODIUM CHLORIDE [Suspect]
     Active Substance: SODIUM CHLORIDE
     Indication: Medication dilution
     Dosage: UNK 1ST CHEMOTHERAPY,CYCLOPHOSPHAMIDE FOR INJECTION (ENDOXAN CTX)  + NS
     Route: 042
  4. SODIUM CHLORIDE [Suspect]
     Active Substance: SODIUM CHLORIDE
     Dosage: UNK 1ST CHEMOTHERAPY , DOCETAXEL INJECTION (HUIYU)+ NS
     Route: 041
  5. SODIUM CHLORIDE [Suspect]
     Active Substance: SODIUM CHLORIDE
     Dosage: 50 ML, 2ND CHEMOTHERAPY QDCYCLOPHOSPHAMIDE FOR INJECTION (ENDOXAN CTX) 920 MG + NS 50ML, QD
     Route: 042
     Dates: start: 20220420, end: 20220420
  6. SODIUM CHLORIDE [Suspect]
     Active Substance: SODIUM CHLORIDE
     Dosage: 250 ML, QD 2NDCHEMOTHERAPY, DOCETAXEL INJECTION (HUIYU) 115 MG + NS 250ML, QD
     Route: 041
     Dates: start: 20220420, end: 20220420
  7. DOCETAXEL [Suspect]
     Active Substance: DOCETAXEL
     Indication: Breast cancer female
     Dosage: UNK QD 1ST CHEMOTHERAPY
     Route: 041
  8. DOCETAXEL [Suspect]
     Active Substance: DOCETAXEL
     Dosage: 115 MG, QD 2ND CHEMOTHERAPY  DOCETAXEL INJECTION (HUIYU) 115 MG + NS 250ML, QD
     Route: 041
     Dates: start: 20220420, end: 20220420
  9. MECAPEGFILGRASTIM [Concomitant]
     Active Substance: MECAPEGFILGRASTIM
     Indication: Product used for unknown indication
     Dosage: 6 MG
     Route: 058
     Dates: start: 20220423, end: 20220423

REACTIONS (2)
  - White blood cell count decreased [Recovered/Resolved]
  - Agranulocytosis [Recovered/Resolved]

NARRATIVE: CASE EVENT DATE: 20220425
